FAERS Safety Report 23150915 (Version 3)
Quarter: 2023Q4

REPORT INFORMATION
  Report Type: Spontaneous
  Country: JP (occurrence: JP)
  Receive Date: 20231106
  Receipt Date: 20231205
  Transmission Date: 20240109
  Serious: No
  Sender: FDA-Public Use
  Company Number: JP-BAYER-2023A151863

PATIENT
  Age: 53 Year
  Sex: Male

DRUGS (3)
  1. KERENDIA [Suspect]
     Active Substance: FINERENONE
     Indication: Diabetic nephropathy
     Dosage: UNK
     Dates: start: 20230620, end: 20231023
  2. KERENDIA [Suspect]
     Active Substance: FINERENONE
     Indication: Diabetic nephropathy
     Dosage: UNK
     Dates: start: 20231128
  3. AMOXICILLIN\CLARITHROMYCIN\VONOPRAZAN FUMURATE [Concomitant]
     Active Substance: AMOXICILLIN\CLARITHROMYCIN\VONOPRAZAN FUMURATE
     Indication: Helicobacter infection
     Dosage: UNK
     Route: 048
     Dates: start: 20231019

REACTIONS (4)
  - Nausea [Recovered/Resolved]
  - Diarrhoea [Recovered/Resolved]
  - Pyrexia [Recovered/Resolved]
  - Contraindicated product administered [None]

NARRATIVE: CASE EVENT DATE: 20231020
